FAERS Safety Report 8561109 (Version 2)
Quarter: 2014Q2

REPORT INFORMATION
  Report Type: Report from Study
  Country: US (occurrence: US)
  Receive Date: 20120514
  Receipt Date: 20140417
  Transmission Date: 20141212
  Serious: Yes (Other)
  Sender: FDA-Public Use
  Company Number: US-ALEXION-A201100576

PATIENT
  Age: 57 Year
  Sex: Female

DRUGS (2)
  1. SOLIRIS [Suspect]
     Indication: PAROXYSMAL NOCTURNAL HAEMOGLOBINURIA
     Dosage: UNK
     Route: 042
  2. SIMVASTATIN [Concomitant]

REACTIONS (9)
  - Hepatic steatosis [Not Recovered/Not Resolved]
  - Fibromyalgia [Unknown]
  - Vaginal haemorrhage [Unknown]
  - Arthralgia [Unknown]
  - Nausea [Unknown]
  - Sleep disorder [Recovered/Resolved]
  - Chills [Unknown]
  - Feeling abnormal [Unknown]
  - Discomfort [Unknown]
